FAERS Safety Report 7426821-9 (Version None)
Quarter: 2011Q2

REPORT INFORMATION
  Report Type: 
  Country: None (occurrence: None)
  Receive Date: 20110420
  Receipt Date: 20110418
  Transmission Date: 20111010
  Serious: Yes (Life-Threatening)
  Sender: FDA-Public Use
  Company Number: US-B.I. PHARMACEUTICALS,INC./RIDGEFIELD-2011-BP-07462BP

PATIENT
  Age: 32 Year
  Sex: Female
  Weight: 75.75 kg

DRUGS (2)
  1. COUMADIN [Concomitant]
  2. PRADAXA [Suspect]
     Indication: PULMONARY EMBOLISM
     Route: 048
     Dates: start: 20110302

REACTIONS (3)
  - ANAPHYLACTIC REACTION [None]
  - RASH [None]
  - URTICARIA [None]
